FAERS Safety Report 4302160-X (Version None)
Quarter: 2004Q1

REPORT INFORMATION
  Report Type: 
  Country: None (occurrence: None)
  Receive Date: 20040126
  Receipt Date: 20031007
  Transmission Date: 20041129
  Serious: No
  Sender: FDA-Public Use
  Company Number: USA031049310

PATIENT
  Age: 11 Year
  Sex: Male
  Weight: 32 kg

DRUGS (3)
  1. STRATTERA [Suspect]
     Dosage: 60 MG/ IN THE MORNING
     Dates: start: 20030901
  2. METADATE (METHYLPHENIDATE) [Concomitant]
  3. TENEX [Concomitant]

REACTIONS (4)
  - INFECTION [None]
  - INTENTIONAL MISUSE [None]
  - PRESCRIBED OVERDOSE [None]
  - RASH [None]
